FAERS Safety Report 4677616-0 (Version None)
Quarter: 2005Q2

REPORT INFORMATION
  Report Type: 
  Country: None (occurrence: None)
  Receive Date: 20050531
  Receipt Date: 20050311
  Transmission Date: 20051028
  Serious: Yes (Hospitalization)
  Sender: FDA-Public Use
  Company Number: FR-ROCHE-398563

PATIENT
  Age: 47 Year
  Sex: Male
  Weight: 110 kg

DRUGS (4)
  1. PEGASYS [Suspect]
     Indication: HEPATITIS C
     Route: 058
     Dates: start: 20050128, end: 20050226
  2. REBETOL [Interacting]
     Indication: HEPATITIS C
     Route: 048
  3. LOPRIL [Concomitant]
     Indication: HYPERTENSION
     Dosage: LOPRIL 50.
     Route: 048
  4. CAPTEA [Concomitant]
     Indication: HYPERTENSION
     Route: 048

REACTIONS (3)
  - DRUG INTERACTION [None]
  - PHLEBITIS [None]
  - PULMONARY EMBOLISM [None]
